FAERS Safety Report 13797699 (Version 1)
Quarter: 2017Q3

REPORT INFORMATION
  Report Type: Spontaneous
  Country: JP (occurrence: JP)
  Receive Date: 20170727
  Receipt Date: 20170727
  Transmission Date: 20171127
  Serious: Yes (Death, Other)
  Sender: FDA-Public Use
  Company Number: JP-CIPLA LTD.-2017JP12693

PATIENT

DRUGS (7)
  1. CAPECITABINE. [Suspect]
     Active Substance: CAPECITABINE
     Indication: HER-2 POSITIVE GASTRIC CANCER
     Dosage: 1000 MG/M2, BID, ON DAYS 1-14, EVERY 3 WEEKS AND REPEATED FOR 6 COURSES
     Route: 065
  2. TS-1 [Suspect]
     Active Substance: GIMERACIL\OTERACIL\TEGAFUR
     Indication: HER-2 POSITIVE GASTRIC CANCER
     Dosage: UNK
     Route: 065
  3. IRINOTECAN [Suspect]
     Active Substance: IRINOTECAN
     Indication: HER-2 POSITIVE GASTRIC CANCER
     Dosage: 11 COURSES, BIWEEKLY
     Route: 065
  4. CISPLATIN. [Suspect]
     Active Substance: CISPLATIN
     Indication: HER-2 POSITIVE GASTRIC CANCER
     Dosage: 80 MG/M2, ON DAY 1, EVERY 3 WEEKS AND REPEATED FOR 6 COURSES
     Route: 065
  5. TRASTUZUMAB. [Suspect]
     Active Substance: TRASTUZUMAB
     Indication: HER-2 POSITIVE GASTRIC CANCER
     Dosage: 8 MG/M2, ON DAY 1, ADMINISTERED EVERY 3 WEEKS AND REPEATED FOR 6 COURSES
     Route: 065
  6. PACLITAXEL. [Suspect]
     Active Substance: PACLITAXEL
     Indication: HER-2 POSITIVE GASTRIC CANCER
     Dosage: FOUR COURSES OF WEEKLY PACLITAXEL
     Route: 065
  7. TRASTUZUMAB. [Suspect]
     Active Substance: TRASTUZUMAB
     Dosage: 6 MG/M2, SECOND COURSE, EVERY 3 WEEKS AND REPEATED FOR 6 COURSES
     Route: 065

REACTIONS (3)
  - Diarrhoea [Unknown]
  - Disease recurrence [Unknown]
  - Death [Fatal]
